FAERS Safety Report 5901373-0 (Version None)
Quarter: 2008Q3

REPORT INFORMATION
  Report Type: 
  Country: None (occurrence: None)
  Receive Date: 20080925
  Receipt Date: 20080919
  Transmission Date: 20090109
  Serious: Yes (Other)
  Sender: FDA-Public Use
  Company Number: 2008SP017583

PATIENT
  Age: 49 Year
  Sex: Female

DRUGS (2)
  1. PEGETRON         (PEGINTERFERON ALFA-2B W/ RIBAVIRIN) (PEGYLATED INTER [Suspect]
     Indication: HEPATITIS C
     Dosage: 0.5 ML;SC
     Route: 058
     Dates: start: 20080620, end: 20080620
  2. PEGETRON  (PEGINTERFERON ALFA-2B W/ RIBAVIRIN) (PEGYLATED INTERFERON A [Suspect]
     Dosage: OP
     Route: 048

REACTIONS (5)
  - RETINAL EXUDATES [None]
  - RETINAL HAEMORRHAGE [None]
  - RETINOPATHY HYPERTENSIVE [None]
  - VISION BLURRED [None]
  - VISUAL IMPAIRMENT [None]
